FAERS Safety Report 7992707 (Version 4)
Quarter: 2013Q4

REPORT INFORMATION
  Report Type: Report from Study
  Country: US (occurrence: US)
  Receive Date: 20110615
  Receipt Date: 20131108
  Transmission Date: 20140711
  Serious: Yes (Hospitalization)
  Sender: FDA-Public Use
  Company Number: US-ACTELION-A-NJ2011-49843

PATIENT
  Age: 52 Year
  Sex: Female

DRUGS (5)
  1. TRACLEER [Suspect]
     Indication: PULMONARY ARTERIAL HYPERTENSION
     Dosage: UNK
     Route: 048
     Dates: start: 2011
  2. TRACLEER [Suspect]
     Dosage: UNK
     Route: 048
     Dates: end: 201105
  3. ADCIRCA [Concomitant]
  4. TYVASO [Concomitant]
  5. RITUXAN [Concomitant]

REACTIONS (2)
  - Intestinal obstruction [Unknown]
  - Myalgia [Unknown]
